FAERS Safety Report 7956958-7 (Version None)
Quarter: 2011Q4

REPORT INFORMATION
  Report Type: 
  Country: None (occurrence: None)
  Receive Date: 20111205
  Receipt Date: 20111122
  Transmission Date: 20120403
  Serious: Yes (Life-Threatening, Hospitalization)
  Sender: FDA-Public Use
  Company Number: FR-ROCHE-1002542

PATIENT
  Age: 58 Year
  Sex: Female

DRUGS (6)
  1. PRAZEPAM [Suspect]
     Indication: TOXICITY TO VARIOUS AGENTS
     Route: 002
     Dates: start: 20110525, end: 20110525
  2. LYRICA [Suspect]
     Indication: TOXICITY TO VARIOUS AGENTS
     Route: 002
     Dates: start: 20110525, end: 20110525
  3. CYMBALTA [Concomitant]
  4. ACETAMINOPHEN AND TRAMADOL HCL [Suspect]
     Indication: TOXICITY TO VARIOUS AGENTS
     Route: 002
     Dates: start: 20110525, end: 20110525
  5. CLONAZEPAM [Suspect]
     Indication: TOXICITY TO VARIOUS AGENTS
     Dosage: FLASK
     Route: 002
     Dates: start: 20110525, end: 20110525
  6. ATARAX [Concomitant]
     Indication: PRODUCT USED FOR UNKNOWN INDICATION

REACTIONS (6)
  - HYPOTHERMIA [None]
  - DEPRESSED LEVEL OF CONSCIOUSNESS [None]
  - RESPIRATORY ACIDOSIS [None]
  - CYTOLYTIC HEPATITIS [None]
  - BRADYPNOEA [None]
  - INCORRECT DOSE ADMINISTERED [None]
